FAERS Safety Report 4441852-9 (Version None)
Quarter: 2004Q3

REPORT INFORMATION
  Report Type: 
  Country: None (occurrence: None)
  Receive Date: 20040901
  Receipt Date: 20040817
  Transmission Date: 20050211
  Serious: Yes (Hospitalization)
  Sender: FDA-Public Use
  Company Number: 238500

PATIENT
  Age: 70 Year
  Sex: Female
  Weight: 86 kg

DRUGS (7)
  1. NOVOMIX 30 FLEX PEN(NOVOMIX FLEXPEN)SUSPENSION FOR INJECTION, 100U/ML [Suspect]
     Indication: DIABETES MELLITUS NON-INSULIN-DEPENDENT
     Dosage: 46 IU, QD, SUBCUTANEOUS
     Route: 058
     Dates: start: 20040506, end: 20040728
  2. METFORMIN HCL [Concomitant]
  3. BISOPROLOL FUMARATE [Concomitant]
  4. FUROSEMIDE [Concomitant]
  5. ACETYLSALICYLIC ACID SRT [Concomitant]
  6. SIMVASTATIN [Concomitant]
  7. POTASSIUM (POTASSIUM) [Concomitant]

REACTIONS (3)
  - HYPOGLYCAEMIC COMA [None]
  - LOSS OF CONSCIOUSNESS [None]
  - MENTAL DISORDER [None]
